FAERS Safety Report 10793969 (Version 1)
Quarter: 2015Q1

REPORT INFORMATION
  Report Type: Spontaneous
  Country: US (occurrence: US)
  Receive Date: 20150213
  Receipt Date: 20150213
  Transmission Date: 20150721
  Serious: Yes (Other)
  Sender: FDA-Public Use
  Company Number: US-ELI_LILLY_AND_COMPANY-US201502001381

PATIENT
  Sex: Male

DRUGS (1)
  1. CYMBALTA [Suspect]
     Active Substance: DULOXETINE HYDROCHLORIDE
     Indication: NEUROPATHY PERIPHERAL
     Dosage: 1 DF, UNKNOWN
     Route: 065
     Dates: start: 20130214

REACTIONS (22)
  - Irritability [Unknown]
  - Nausea [Unknown]
  - Mood swings [Unknown]
  - Off label use [Unknown]
  - Diarrhoea [Unknown]
  - Hyperhidrosis [Unknown]
  - Dizziness [Unknown]
  - Vomiting [Unknown]
  - Panic attack [Unknown]
  - Influenza like illness [Unknown]
  - Paraesthesia [Unknown]
  - Fatigue [Unknown]
  - Intentional product misuse [Unknown]
  - Agitation [Unknown]
  - Suicidal behaviour [Unknown]
  - Palpitations [Unknown]
  - Headache [Unknown]
  - Drug withdrawal syndrome [Unknown]
  - Tremor [Unknown]
  - Confusional state [Unknown]
  - Aggression [Unknown]
  - Motor dysfunction [Unknown]

NARRATIVE: CASE EVENT DATE: 20130214
